FAERS Safety Report 5473538-6 (Version None)
Quarter: 2007Q4

REPORT INFORMATION
  Report Type: 
  Country: None (occurrence: None)
  Receive Date: 20071001
  Receipt Date: 20070615
  Transmission Date: 20080405
  Serious: No
  Sender: FDA-Public Use
  Company Number: US-ASTRAZENECA-2007UW09302

PATIENT
  Age: 86 Year
  Sex: Female

DRUGS (1)
  1. ARIMIDEX [Suspect]
     Dates: start: 20030901

REACTIONS (9)
  - COUGH [None]
  - DEPRESSION [None]
  - DIZZINESS [None]
  - HOT FLUSH [None]
  - HYPERTENSION [None]
  - NAUSEA [None]
  - VERTIGO [None]
  - VISUAL DISTURBANCE [None]
  - VOMITING [None]
